FAERS Safety Report 4284292-8 (Version None)
Quarter: 2004Q1

REPORT INFORMATION
  Report Type: 
  Country: None (occurrence: None)
  Receive Date: 20040202
  Receipt Date: 20040202
  Transmission Date: 20041129
  Serious: Yes (Life-Threatening, Hospitalization)
  Sender: FDA-Public Use
  Company Number: None

PATIENT
  Age: 76 Year
  Sex: Female
  Weight: 72.1219 kg

DRUGS (5)
  1. VIOXX [Suspect]
     Indication: OSTEOARTHRITIS
     Dates: start: 20031101
  2. VERAPAMIL [Concomitant]
  3. POTASSIUM [Concomitant]
  4. GLUCOTROL [Concomitant]
  5. HYDROCHLOROTHIAZIDE [Concomitant]

REACTIONS (4)
  - BLOOD BLISTER [None]
  - CONTUSION [None]
  - EPISTAXIS [None]
  - THROMBOCYTOPENIA [None]
